FAERS Safety Report 5296671-0 (Version None)
Quarter: 2007Q2

REPORT INFORMATION
  Report Type: 
  Country: None (occurrence: None)
  Receive Date: 20070413
  Receipt Date: 20070402
  Transmission Date: 20071010
  Serious: Yes (Hospitalization, Other)
  Sender: FDA-Public Use
  Company Number: PH-PFIZER INC-2007018112

PATIENT
  Sex: Male
  Weight: 64 kg

DRUGS (9)
  1. SU-011,248 [Suspect]
     Indication: RENAL CELL CARCINOMA STAGE UNSPECIFIED
     Route: 048
     Dates: start: 20070206, end: 20070305
  2. SU-011,248 [Suspect]
  3. ATENOLOL [Concomitant]
     Route: 048
     Dates: start: 20020701, end: 20070306
  4. CALCIBLOC [Concomitant]
     Dosage: FREQ:OD
     Dates: start: 20020314
  5. FLUIMUCIL [Concomitant]
     Dates: start: 20041203, end: 20070314
  6. FERROUS SULFATE [Concomitant]
     Route: 048
     Dates: start: 20001102, end: 20070314
  7. CALCIUM CARBONATE [Concomitant]
     Route: 048
     Dates: start: 20001102, end: 20070314
  8. NEUROBION [Concomitant]
     Route: 048
     Dates: start: 20060328, end: 20070314
  9. NEURONTIN [Concomitant]
     Route: 048
     Dates: start: 20060321, end: 20070314

REACTIONS (5)
  - GENERALISED OEDEMA [None]
  - HYPONATRAEMIA [None]
  - HYPOTHYROIDISM [None]
  - PERICARDIAL EFFUSION [None]
  - PLEURAL EFFUSION [None]
